FAERS Safety Report 5484777-2 (Version None)
Quarter: 2007Q4

REPORT INFORMATION
  Report Type: 
  Country: None (occurrence: None)
  Receive Date: 20071010
  Receipt Date: 20070927
  Transmission Date: 20080405
  Serious: Yes (Other)
  Sender: FDA-Public Use
  Company Number: 2007AL004113

PATIENT
  Age: 67 Year
  Sex: Male

DRUGS (10)
  1. FLUOXETINE [Suspect]
     Dosage: 20 MG; BID;
  2. RIMONABANT [Concomitant]
  3. DIHYDROCODEINE BITARTRATE INJ [Concomitant]
  4. TILDIEM [Concomitant]
  5. SIMVASTATIN [Concomitant]
  6. PERINDOPRIL ERBUMINE [Concomitant]
  7. GLICLAZIDE [Concomitant]
  8. METFORMIN [Concomitant]
  9. ACETYLSALICYLIC ACID [Concomitant]
  10. ROSIGLITAZONE [Concomitant]

REACTIONS (8)
  - AGITATION [None]
  - ANGER [None]
  - CONFUSIONAL STATE [None]
  - DRUG WITHDRAWAL SYNDROME [None]
  - FEELING JITTERY [None]
  - HALLUCINATIONS, MIXED [None]
  - IRRITABILITY [None]
  - PSYCHOTIC DISORDER [None]
